FAERS Safety Report 15670969 (Version 1)
Quarter: 2018Q4

REPORT INFORMATION
  Report Type: Spontaneous
  Country: DE (occurrence: DE)
  Receive Date: 20181129
  Receipt Date: 20181129
  Transmission Date: 20190205
  Serious: Yes (Other)
  Sender: FDA-Public Use
  Company Number: PHNU2001DE02555

PATIENT
  Age: 28 Year
  Sex: Female
  Weight: 68 kg

DRUGS (3)
  1. FRAGMIN [Concomitant]
     Active Substance: DALTEPARIN SODIUM
     Indication: PRODUCT USED FOR UNKNOWN INDICATION
     Route: 058
     Dates: start: 20011105
  2. MONO-EMBOLEX [Suspect]
     Active Substance: CERTOPARIN SODIUM
     Indication: THROMBOSIS PROPHYLAXIS
     Route: 058
     Dates: start: 200111
  3. MONO-EMBOLEX [Suspect]
     Active Substance: CERTOPARIN SODIUM
     Indication: THROMBOSIS PROPHYLAXIS
     Route: 058
     Dates: start: 20011103, end: 20011104

REACTIONS (5)
  - Cardiovascular disorder [Recovered/Resolved]
  - Vertigo [Recovered/Resolved]
  - Chills [Recovered/Resolved]
  - Peripheral coldness [Recovered/Resolved]
  - Headache [Recovered/Resolved]

NARRATIVE: CASE EVENT DATE: 20011103
